FAERS Safety Report 10568920 (Version 1)
Quarter: 2014Q4

REPORT INFORMATION
  Report Type: Spontaneous
  Country: US (occurrence: US)
  Receive Date: 20141106
  Receipt Date: 20141106
  Transmission Date: 20150529
  Serious: Yes (Hospitalization)
  Sender: FDA-Public Use
  Company Number: US-GILEAD-2014-0121441

PATIENT
  Age: 52 Year
  Sex: Female

DRUGS (16)
  1. PAXIL [Concomitant]
     Active Substance: PAROXETINE HYDROCHLORIDE
  2. WARFARIN [Concomitant]
     Active Substance: WARFARIN
  3. KLONOPIN [Concomitant]
     Active Substance: CLONAZEPAM
  4. PREDNISONE. [Concomitant]
     Active Substance: PREDNISONE
  5. FENOFIBRATE. [Concomitant]
     Active Substance: FENOFIBRATE
  6. MOBIC [Concomitant]
     Active Substance: MELOXICAM
  7. SPIRONOLACTONE. [Concomitant]
     Active Substance: SPIRONOLACTONE
  8. TYVASO [Concomitant]
     Active Substance: TREPROSTINIL
  9. LETAIRIS [Suspect]
     Active Substance: AMBRISENTAN
     Indication: PULMONARY HYPERTENSION
     Dosage: 10 MG, QD
     Route: 065
     Dates: start: 20120109
  10. SYNTHROID [Concomitant]
     Active Substance: LEVOTHYROXINE SODIUM
  11. TORSEMIDE. [Concomitant]
     Active Substance: TORSEMIDE
  12. POTASSIUM [Concomitant]
     Active Substance: POTASSIUM
  13. DIGOXIN. [Concomitant]
     Active Substance: DIGOXIN
  14. REVATIO [Concomitant]
     Active Substance: SILDENAFIL CITRATE
  15. PERCOCET [Concomitant]
     Active Substance: ACETAMINOPHEN\OXYCODONE HYDROCHLORIDE
  16. FLEXERIL [Concomitant]
     Active Substance: CYCLOBENZAPRINE HYDROCHLORIDE

REACTIONS (5)
  - Menopause [Unknown]
  - Chest pain [Unknown]
  - Heart rate increased [Unknown]
  - Nausea [Unknown]
  - Stress [Unknown]
